FAERS Safety Report 21901332 (Version 1)
Quarter: 2023Q1

REPORT INFORMATION
  Report Type: Spontaneous
  Country: US (occurrence: US)
  Receive Date: 20230123
  Receipt Date: 20230123
  Transmission Date: 20230418
  Serious: No
  Sender: FDA-Public Use
  Company Number: US-ABBVIE-4244706

PATIENT
  Sex: Male

DRUGS (1)
  1. MAVYRET [Suspect]
     Active Substance: GLECAPREVIR\PIBRENTASVIR
     Indication: Chronic hepatitis C
     Route: 048

REACTIONS (7)
  - Adverse drug reaction [Unknown]
  - Mobility decreased [Unknown]
  - Arthralgia [Unknown]
  - Back disorder [Unknown]
  - Nervous system disorder [Unknown]
  - Bone pain [Unknown]
  - Muscle disorder [Unknown]

NARRATIVE: CASE EVENT DATE: 20221123
